FAERS Safety Report 5128870-2 (Version None)
Quarter: 2006Q4

REPORT INFORMATION
  Report Type: 
  Country: None (occurrence: None)
  Receive Date: 20061017
  Receipt Date: 20060606
  Transmission Date: 20070319
  Serious: No
  Sender: FDA-Public Use
  Company Number: US-GLAXOSMITHKLINE-A0608087A

PATIENT
  Sex: Male

DRUGS (1)
  1. CEFTIN [Suspect]
     Dosage: 500MG TWICE PER DAY
     Route: 048
     Dates: start: 20060412

REACTIONS (2)
  - DYSGEUSIA [None]
  - SALIVA DISCOLOURATION [None]
